FAERS Safety Report 6420397-0 (Version None)
Quarter: 2009Q4

REPORT INFORMATION
  Report Type: 
  Country: None (occurrence: None)
  Receive Date: 20091029
  Receipt Date: 20091016
  Transmission Date: 20100525
  Serious: Yes (Other)
  Sender: FDA-Public Use
  Company Number: US-ELI_LILLY_AND_COMPANY-US200908003730

PATIENT
  Age: 56 Year
  Sex: Female
  Weight: 109.75 kg

DRUGS (11)
  1. CYMBALTA [Suspect]
     Indication: DEPRESSION
     Dosage: 30 MG, UNK
     Dates: start: 20081006, end: 20081012
  2. CYMBALTA [Suspect]
     Dosage: 60 MG, UNK
     Dates: start: 20081013, end: 20081226
  3. ALBUTEROL [Concomitant]
  4. ALCOHOL [Concomitant]
  5. CHANTIX                            /05703001/ [Concomitant]
     Indication: SMOKING CESSATION THERAPY
  6. VICODIN [Concomitant]
     Indication: PAIN
     Dosage: 6 D/F, DAILY (1/D)
  7. FUROSEMIDE [Concomitant]
     Indication: OEDEMA PERIPHERAL
     Dosage: 1 D/F, UNK
  8. POTASSIUM CHLORIDE [Concomitant]
     Indication: OEDEMA PERIPHERAL
  9. PROVENTIL                               /USA/ [Concomitant]
     Indication: ASTHMA
     Dosage: 1 D/F, UNK
  10. SYMBICORT [Concomitant]
     Indication: ASTHMA
     Dosage: 1 D/F, UNK
  11. PREDNISONE [Concomitant]
     Indication: ASTHMA
     Dosage: 1 D/F, UNK

REACTIONS (8)
  - ALANINE AMINOTRANSFERASE INCREASED [None]
  - ASPARTATE AMINOTRANSFERASE INCREASED [None]
  - BLOOD ALKALINE PHOSPHATASE INCREASED [None]
  - DYSURIA [None]
  - HEPATIC CIRRHOSIS [None]
  - HEPATIC STEATOSIS [None]
  - PORTAL HYPERTENSION [None]
  - TREMOR [None]
